FAERS Safety Report 5321258-0 (Version None)
Quarter: 2007Q2

REPORT INFORMATION
  Report Type: 
  Country: None (occurrence: None)
  Receive Date: 20070507
  Receipt Date: 20070507
  Transmission Date: 20071010
  Serious: Yes (Other)
  Sender: FDA-Public Use
  Company Number: None

PATIENT
  Age: 15 Year
  Sex: Female
  Weight: 58.9676 kg

DRUGS (1)
  1. SUDAL 4-30MG ATLEY PHARMACY [Suspect]
     Indication: EAR INFECTION
     Dates: start: 20070501, end: 20070504

REACTIONS (1)
  - ALOPECIA [None]
